FAERS Safety Report 7070725-0 (Version None)
Quarter: 2010Q4

REPORT INFORMATION
  Report Type: 
  Country: None (occurrence: None)
  Receive Date: 20101027
  Receipt Date: 20101027
  Transmission Date: 20110411
  Serious: Yes (Hospitalization)
  Sender: FDA-Public Use
  Company Number: None

PATIENT
  Age: 69 Year
  Sex: Female
  Weight: 72.5755 kg

DRUGS (2)
  1. ACTONEL [Suspect]
     Indication: OSTEOPENIA
     Dosage: WEEKLY PO
     Route: 048
     Dates: start: 20030101, end: 20060101
  2. BONIVA [Concomitant]

REACTIONS (2)
  - FALL [None]
  - FEMUR FRACTURE [None]
